FAERS Safety Report 5342796-0 (Version None)
Quarter: 2007Q2

REPORT INFORMATION
  Report Type: 
  Country: None (occurrence: None)
  Receive Date: 20070601
  Receipt Date: 20070524
  Transmission Date: 20071010
  Serious: Yes (Other)
  Sender: FDA-Public Use
  Company Number: US-PFIZER INC-2007042465

PATIENT
  Sex: Male
  Weight: 77.1 kg

DRUGS (5)
  1. XANAX [Suspect]
     Indication: AGITATION
  2. XANAX [Suspect]
     Indication: SLEEP DISORDER
  3. PSEUDOEPHEDRINE HCL [Concomitant]
  4. TYLENOL [Concomitant]
  5. SYNTHROID [Concomitant]

REACTIONS (5)
  - GASTRIC BYPASS [None]
  - LACRIMAL DISORDER [None]
  - LENS DISORDER [None]
  - STRESS [None]
  - THYROID CANCER [None]
